FAERS Safety Report 25201967 (Version 1)
Quarter: 2025Q2

REPORT INFORMATION
  Report Type: Spontaneous
  Country: US (occurrence: US)
  Receive Date: 20250416
  Receipt Date: 20250416
  Transmission Date: 20250716
  Serious: No
  Sender: ABBVIE
  Company Number: US-ABBVIE-6225646

PATIENT
  Sex: Male

DRUGS (1)
  1. SKYRIZI [Suspect]
     Active Substance: RISANKIZUMAB-RZAA
     Indication: Psoriasis
     Route: 058
     Dates: start: 20250213

REACTIONS (3)
  - Peripheral swelling [Unknown]
  - Urticaria [Unknown]
  - Lip swelling [Unknown]

NARRATIVE: CASE EVENT DATE: 20250101
